FAERS Safety Report 9697504 (Version 1)
Quarter: 2013Q4

REPORT INFORMATION
  Report Type: Spontaneous
  Country: FR (occurrence: FR)
  Receive Date: 20131120
  Receipt Date: 20131120
  Transmission Date: 20140711
  Serious: Yes (Other)
  Sender: FDA-Public Use
  Company Number: FR-009507513-1311FRA005114

PATIENT
  Age: 67 Year
  Sex: Male

DRUGS (1)
  1. NOROXINE [Suspect]
     Indication: URINARY TRACT INFECTION
     Dosage: 800 MG, ONCE
     Route: 048
     Dates: start: 20130912, end: 20130912

REACTIONS (7)
  - Sneezing [Recovered/Resolved]
  - Dysphagia [Recovered/Resolved]
  - Vertigo [Recovered/Resolved]
  - Hypertension [Recovered/Resolved]
  - Erythema [Recovered/Resolved]
  - Headache [Recovered/Resolved]
  - Pruritus [Recovered/Resolved]
